FAERS Safety Report 16770285 (Version 1)
Quarter: 2019Q3

REPORT INFORMATION
  Report Type: Spontaneous
  Country: CA (occurrence: CA)
  Receive Date: 20190904
  Receipt Date: 20190904
  Transmission Date: 20191005
  Serious: Yes (Hospitalization, Other)
  Sender: FDA-Public Use
  Company Number: CA-TEVA-2019-CA-1101398

PATIENT
  Age: 26 Year
  Sex: Female
  Weight: 48 kg

DRUGS (1)
  1. RABEPRAZOLE [Suspect]
     Active Substance: RABEPRAZOLE
     Indication: ABDOMINAL PAIN UPPER
     Dosage: 20 MILLIGRAM DAILY;
     Route: 048

REACTIONS (20)
  - Hyperhidrosis [Unknown]
  - Vision blurred [Unknown]
  - Headache [Unknown]
  - Musculoskeletal pain [Unknown]
  - Nausea [Unknown]
  - Abdominal pain upper [Unknown]
  - Asthenia [Unknown]
  - Dysgeusia [Unknown]
  - Skin discolouration [Unknown]
  - Blood pressure increased [Unknown]
  - Fatigue [Unknown]
  - Pain in extremity [Unknown]
  - Tremor [Unknown]
  - Mental disorder [Unknown]
  - Confusional state [Unknown]
  - Chest pain [Unknown]
  - Heart rate increased [Unknown]
  - Mydriasis [Unknown]
  - Nail discolouration [Unknown]
  - Oxygen saturation decreased [Unknown]
